FAERS Safety Report 9612494 (Version 1)
Quarter: 2013Q4

REPORT INFORMATION
  Report Type: Report from Study
  Country: US (occurrence: US)
  Receive Date: 20131010
  Receipt Date: 20131010
  Transmission Date: 20140711
  Serious: Yes (Hospitalization, Other)
  Sender: FDA-Public Use
  Company Number: US-SA-2013SA097199

PATIENT
  Age: 59 Year
  Sex: Female

DRUGS (1)
  1. AUBAGIO [Suspect]
     Indication: MULTIPLE SCLEROSIS
     Route: 048
     Dates: start: 20130108, end: 20130723

REACTIONS (11)
  - Syncope [Not Recovered/Not Resolved]
  - Chest pain [Not Recovered/Not Resolved]
  - Stress [Not Recovered/Not Resolved]
  - Oesophageal ulcer [Not Recovered/Not Resolved]
  - Candida infection [Not Recovered/Not Resolved]
  - Hypertension [Not Recovered/Not Resolved]
  - Multiple sclerosis [Not Recovered/Not Resolved]
  - Muscular weakness [Not Recovered/Not Resolved]
  - Wheelchair user [Not Recovered/Not Resolved]
  - Dyspnoea [Not Recovered/Not Resolved]
  - Anaemia [Not Recovered/Not Resolved]
